FAERS Safety Report 14167558 (Version 3)
Quarter: 2018Q1

REPORT INFORMATION
  Report Type: Spontaneous
  Country: IT (occurrence: IT)
  Receive Date: 20171108
  Receipt Date: 20180312
  Transmission Date: 20180508
  Serious: Yes (Other)
  Sender: FDA-Public Use
  Company Number: IT-BAXTER-2017BAX037770

PATIENT
  Age: 73 Year
  Sex: Male

DRUGS (4)
  1. FLUXUM [Concomitant]
     Active Substance: PARNAPARIN SODIUM
     Indication: PRODUCT USED FOR UNKNOWN INDICATION
     Dosage: AXA INJECTABLE SOLUTION IN PREFILLED SYRINGE. SIX PREFILLED SYRINGES-0.4ML
     Route: 065
  2. PARACETAMOL [Concomitant]
     Active Substance: ACETAMINOPHEN
     Indication: PRODUCT USED FOR UNKNOWN INDICATION
     Route: 042
  3. METRONIDAZOLO BAXTER S.P.A. [Suspect]
     Active Substance: METRONIDAZOLE
     Indication: PNEUMONIA
     Dosage: INJECTABLE SOLUTION
     Route: 042
     Dates: start: 20170820, end: 20170824
  4. PIPERACILLINE SODIUM/TAZOBACTAM [Suspect]
     Active Substance: PIPERACILLIN SODIUM\TAZOBACTAM SODIUM
     Indication: PNEUMONIA
     Dosage: INJECTABLE SOLUTION
     Route: 058
     Dates: start: 20170819, end: 20170824

REACTIONS (3)
  - Erythema [Recovering/Resolving]
  - Urticaria [Recovering/Resolving]
  - Angioedema [Recovering/Resolving]

NARRATIVE: CASE EVENT DATE: 20170824
